FAERS Safety Report 9736667 (Version 1)
Quarter: 2013Q4

REPORT INFORMATION
  Report Type: Spontaneous
  Country: US (occurrence: US)
  Receive Date: 20131206
  Receipt Date: 20131206
  Transmission Date: 20140711
  Serious: No
  Sender: FDA-Public Use
  Company Number: US-GILEAD-2009-0023229

PATIENT
  Sex: Female
  Weight: 98.88 kg

DRUGS (10)
  1. LETAIRIS [Suspect]
     Indication: PULMONARY ARTERIAL HYPERTENSION
     Route: 048
     Dates: start: 20071108
  2. COUMADIN [Concomitant]
  3. CYPROHEPTADINE [Concomitant]
  4. LASIX [Concomitant]
  5. TENORMIN [Concomitant]
  6. ZETIA [Concomitant]
  7. MAXALT [Concomitant]
  8. OXYCONTIN [Concomitant]
  9. PROZAC [Concomitant]
  10. KLONOPIN [Concomitant]

REACTIONS (1)
  - Haemoglobin decreased [Unknown]
